FAERS Safety Report 14376720 (Version 1)
Quarter: 2018Q1

REPORT INFORMATION
  Report Type: Spontaneous
  Country: US (occurrence: US)
  Receive Date: 20180110
  Receipt Date: 20180110
  Transmission Date: 20180509
  Serious: No
  Sender: FDA-Public Use
  Company Number: None

PATIENT
  Age: 53 Year
  Sex: Male

DRUGS (1)
  1. HUMIRA [Suspect]
     Active Substance: ADALIMUMAB
     Indication: CROHN^S DISEASE
     Dosage: 40MG/0.8ML EVERY 14 HOURS SUBCUTANEOUSLY
     Route: 058
     Dates: start: 20141231, end: 20171020

REACTIONS (1)
  - Rash [None]

NARRATIVE: CASE EVENT DATE: 20171020
